FAERS Safety Report 14442022 (Version 2)
Quarter: 2018Q1

REPORT INFORMATION
  Report Type: Spontaneous
  Country: US (occurrence: US)
  Receive Date: 20180125
  Receipt Date: 20180215
  Transmission Date: 20180509
  Serious: Yes (Hospitalization)
  Sender: FDA-Public Use
  Company Number: US-PFIZER INC-2018032630

PATIENT
  Age: 65 Year
  Sex: Male
  Weight: 59.42 kg

DRUGS (2)
  1. VFEND [Suspect]
     Active Substance: VORICONAZOLE
     Indication: FUNGAL INFECTION
     Dosage: 200 MG, ONE IN MORNING ONE AT NIGHT
     Dates: start: 201707
  2. VFEND [Suspect]
     Active Substance: VORICONAZOLE
     Indication: ASPERGILLOMA
     Dosage: UNK

REACTIONS (1)
  - Pneumonia [Recovered/Resolved]
